FAERS Safety Report 16987728 (Version 1)
Quarter: 2019Q4

REPORT INFORMATION
  Report Type: Spontaneous
  Country: IE (occurrence: IE)
  Receive Date: 20191104
  Receipt Date: 20191104
  Transmission Date: 20200122
  Serious: Yes (Other)
  Sender: FDA-Public Use
  Company Number: IE-AUROBINDO-AUR-APL-2019-070149

PATIENT
  Age: 42 Year
  Sex: Female

DRUGS (1)
  1. PIPERACILLIN/TAZOBACTAM4.5G POWDER FOR SOLUTIONFOR INJECTION/INFUSION [Suspect]
     Active Substance: PIPERACILLIN SODIUM\TAZOBACTAM SODIUM
     Indication: INFECTION
     Dosage: 4.5 GRAM, EVERY 8 HOUR
     Route: 042
     Dates: start: 20191007, end: 20191007

REACTIONS (3)
  - Heart rate increased [Recovered/Resolved]
  - Rash [Recovered/Resolved]
  - Pruritus [Recovered/Resolved]

NARRATIVE: CASE EVENT DATE: 20191007
